FAERS Safety Report 5935407-4 (Version None)
Quarter: 2008Q4

REPORT INFORMATION
  Report Type: 
  Country: None (occurrence: None)
  Receive Date: 20081030
  Receipt Date: 20081017
  Transmission Date: 20090506
  Serious: Yes (Other)
  Sender: FDA-Public Use
  Company Number: US-ELI_LILLY_AND_COMPANY-US200810003075

PATIENT
  Sex: Female

DRUGS (15)
  1. FORTEO [Suspect]
     Dosage: 20 UG, DAILY (1/D)
     Dates: start: 20070601
  2. FENTANYL [Concomitant]
     Route: 062
  3. DILAUDID [Concomitant]
  4. PREMARIN [Concomitant]
  5. LISINOPRIL [Concomitant]
  6. TEGRETOL [Concomitant]
  7. PANTOPRAZOLE SODIUM [Concomitant]
  8. NADOLOL [Concomitant]
  9. CYMBALTA [Concomitant]
  10. KEPPRA [Concomitant]
  11. MULTI-VITAMIN [Concomitant]
  12. LEVAQUIN [Concomitant]
  13. CALCIUM [Concomitant]
  14. ASCORBIC ACID [Concomitant]
  15. VITAMIN E [Concomitant]

REACTIONS (5)
  - BONE PAIN [None]
  - COMPLEX REGIONAL PAIN SYNDROME [None]
  - DYSURIA [None]
  - RENAL DISORDER [None]
  - RENAL FAILURE [None]
